FAERS Safety Report 8925762 (Version 2)
Quarter: 2013Q1

REPORT INFORMATION
  Report Type: Spontaneous
  Country: FR (occurrence: FR)
  Receive Date: 20121126
  Receipt Date: 20130328
  Transmission Date: 20140127
  Serious: Yes (Hospitalization)
  Sender: FDA-Public Use
  Company Number: FR-ROCHE-1159568

PATIENT
  Age: 71 Year
  Sex: Female

DRUGS (19)
  1. ROCEPHINE [Suspect]
     Indication: PRODUCT USED FOR UNKNOWN INDICATION
     Route: 065
     Dates: start: 20121021, end: 20121021
  2. AUGMENTIN [Interacting]
     Indication: PRODUCT USED FOR UNKNOWN INDICATION
     Route: 065
     Dates: start: 20121015, end: 20121030
  3. FLAGYL [Suspect]
     Indication: PRODUCT USED FOR UNKNOWN INDICATION
     Route: 065
     Dates: start: 20121022
  4. FLAGYL [Suspect]
     Route: 065
     Dates: start: 20121023, end: 20121023
  5. ZYLORIC [Interacting]
     Indication: PRODUCT USED FOR UNKNOWN INDICATION
     Route: 065
  6. LIORESAL [Concomitant]
  7. MYOLASTAN [Concomitant]
  8. XELEVIA [Concomitant]
  9. FLECAINE [Concomitant]
  10. TRIATEC [Concomitant]
  11. CELECTOL [Concomitant]
  12. LASILIX [Concomitant]
  13. FRACTAL [Concomitant]
  14. XYZALL [Concomitant]
  15. NITRIDERM [Concomitant]
  16. STAGID [Concomitant]
  17. ZYLORIC [Concomitant]
  18. DAFALGAN [Concomitant]
  19. LYRICA [Concomitant]

REACTIONS (2)
  - Rash generalised [Recovered/Resolved]
  - Drug interaction [Unknown]
